FAERS Safety Report 4296108-4 (Version None)
Quarter: 2004Q1

REPORT INFORMATION
  Report Type: 
  Country: None (occurrence: None)
  Receive Date: 20040212
  Receipt Date: 20040203
  Transmission Date: 20041129
  Serious: Yes (Hospitalization, Other)
  Sender: FDA-Public Use
  Company Number: HQWYE796903FEB04

PATIENT
  Age: 78 Year
  Sex: Male

DRUGS (1)
  1. CORDARONE [Suspect]
     Dosage: 400 MG 1 X PER 1 DAY, ^A FEW YEARS^
     Route: 048
     Dates: end: 20030101

REACTIONS (3)
  - LUNG INFILTRATION [None]
  - LYMPHADENOPATHY MEDIASTINAL [None]
  - PLEURAL EFFUSION [None]
